FAERS Safety Report 24867269 (Version 1)
Quarter: 2025Q1

REPORT INFORMATION
  Report Type: Report from Study
  Country: DE (occurrence: DE)
  Receive Date: 20250121
  Receipt Date: 20250121
  Transmission Date: 20250409
  Serious: Yes (Other)
  Sender: TEVA
  Company Number: DE-TEVA-VS-3285848

PATIENT
  Age: 59 Year
  Sex: Male

DRUGS (2)
  1. RIBAVIRIN [Suspect]
     Active Substance: RIBAVIRIN
     Indication: Chronic hepatitis C
     Route: 065
  2. PEGINTERFERON ALFA-2A [Suspect]
     Active Substance: PEGINTERFERON ALFA-2A
     Indication: Chronic hepatitis C
     Route: 065

REACTIONS (13)
  - Deafness unilateral [Not Recovered/Not Resolved]
  - Dry mouth [Recovering/Resolving]
  - Epistaxis [Recovered/Resolved]
  - Sleep disorder [Recovered/Resolved]
  - Insomnia [Recovering/Resolving]
  - Thrombocytopenia [Recovered/Resolved]
  - Orchitis noninfective [Unknown]
  - Anaemia [Recovered/Resolved]
  - Insomnia [Recovered/Resolved]
  - Weight decreased [Recovered/Resolved]
  - Tinnitus [Recovering/Resolving]
  - Depression [Recovering/Resolving]
  - Fatigue [Not Recovered/Not Resolved]

NARRATIVE: CASE EVENT DATE: 20111125
